FAERS Safety Report 6237024-8 (Version None)
Quarter: 2009Q2

REPORT INFORMATION
  Report Type: 
  Country: None (occurrence: None)
  Receive Date: 20090617
  Receipt Date: 20080116
  Transmission Date: 20091009
  Serious: No
  Sender: FDA-Public Use
  Company Number: 271476

PATIENT
  Age: 76 Year
  Sex: Male

DRUGS (1)
  1. LEVEMIR [Suspect]
     Indication: TYPE 2 DIABETES MELLITUS
     Dosage: 74 IU, QD, SUBCUTANEOUS
     Route: 058
     Dates: start: 20080102

REACTIONS (1)
  - DIABETES MELLITUS INADEQUATE CONTROL [None]
